FAERS Safety Report 4557894-9 (Version None)
Quarter: 2005Q1

REPORT INFORMATION
  Report Type: 
  Country: None (occurrence: None)
  Receive Date: 20050121
  Receipt Date: 20040115
  Transmission Date: 20050727
  Serious: Yes (Hospitalization)
  Sender: FDA-Public Use
  Company Number: US-BRISTOL-MYERS SQUIBB COMPANY-12479440

PATIENT
  Sex: Female

DRUGS (1)
  1. SERZONE [Suspect]
     Dates: start: 20010601, end: 20020701

REACTIONS (2)
  - ABDOMINAL PAIN [None]
  - HEPATOCELLULAR DAMAGE [None]
